FAERS Safety Report 6063817-6 (Version None)
Quarter: 2009Q1

REPORT INFORMATION
  Report Type: 
  Country: None (occurrence: None)
  Receive Date: 20090204
  Receipt Date: 20090129
  Transmission Date: 20090719
  Serious: Yes (Other)
  Sender: FDA-Public Use
  Company Number: GB-JNJFOC-20090200405

PATIENT
  Age: 39 Year
  Sex: Female

DRUGS (1)
  1. CILEST [Suspect]
     Indication: DRUG USE FOR UNKNOWN INDICATION
     Dosage: OVER TWO YEARS AGO
     Route: 048

REACTIONS (5)
  - ANAEMIA [None]
  - DYSPAREUNIA [None]
  - METRORRHAGIA [None]
  - UTERINE LEIOMYOMA [None]
  - WEIGHT DECREASED [None]
